FAERS Safety Report 4480513-7 (Version None)
Quarter: 2004Q4

REPORT INFORMATION
  Report Type: 
  Country: None (occurrence: None)
  Receive Date: 20041019
  Receipt Date: 20041007
  Transmission Date: 20050328
  Serious: Yes (Hospitalization)
  Sender: FDA-Public Use
  Company Number: 2004AP03824

PATIENT
  Age: 79 Year
  Sex: Female

DRUGS (15)
  1. MEROPENEM [Suspect]
     Indication: PNEUMONIA ASPIRATION
     Dosage: 0.5 G BID IVD
     Route: 041
     Dates: start: 20040320, end: 20040330
  2. MEROPENEM [Suspect]
     Indication: PNEUMONIA ASPIRATION
     Dosage: 0.5 G BID IVD
     Route: 041
     Dates: start: 20040406, end: 20040415
  3. HUMULIN R [Concomitant]
  4. RADICUT [Concomitant]
  5. LASIX [Concomitant]
  6. ALDACTONE-A [Concomitant]
  7. ZYLORIC [Concomitant]
  8. NORVASC [Concomitant]
  9. DIGOXIN [Concomitant]
  10. GASTER [Concomitant]
  11. BAYASPIRIN [Concomitant]
  12. LANTUS [Concomitant]
  13. DOGMATYL [Concomitant]
  14. FOY [Concomitant]
  15. ZANTAC [Concomitant]

REACTIONS (4)
  - ANAEMIA [None]
  - DISEASE RECURRENCE [None]
  - ENTEROCOLITIS HAEMORRHAGIC [None]
  - PNEUMONIA ASPIRATION [None]
